FAERS Safety Report 24149262 (Version 1)
Quarter: 2024Q3

REPORT INFORMATION
  Report Type: Report from Study
  Country: US (occurrence: US)
  Receive Date: 20240729
  Receipt Date: 20240729
  Transmission Date: 20241017
  Serious: Yes (Other)
  Sender: ABBVIE
  Company Number: US-ABBVIE-5854115

PATIENT
  Sex: Male

DRUGS (1)
  1. SKYRIZI [Suspect]
     Active Substance: RISANKIZUMAB-RZAA
     Indication: Psoriasis
     Route: 058
     Dates: start: 20240518

REACTIONS (4)
  - Pelvic fracture [Recovering/Resolving]
  - Spinal fracture [Recovering/Resolving]
  - Femur fracture [Recovering/Resolving]
  - Accident at work [Unknown]

NARRATIVE: CASE EVENT DATE: 20240101
